FAERS Safety Report 4797356-7 (Version None)
Quarter: 2005Q4

REPORT INFORMATION
  Report Type: 
  Country: None (occurrence: None)
  Receive Date: 20051013
  Receipt Date: 20051006
  Transmission Date: 20060501
  Serious: Yes (Hospitalization)
  Sender: FDA-Public Use
  Company Number: US-JNJFOC-20051001912

PATIENT
  Sex: Female

DRUGS (4)
  1. DURAGESIC-100 [Suspect]
     Route: 062
  2. NEURONTIN [Concomitant]
     Route: 048
     Dates: start: 19910101
  3. SOMA [Concomitant]
     Dosage: 1 DOSE, 3 TO 4 TIMES DAILY, ORAL
     Route: 048
     Dates: start: 19960101
  4. MAG-OX [Concomitant]
     Dosage: 1 TABLET, 2 TIMES DAILY, ORAL
     Route: 048

REACTIONS (2)
  - CONVULSION [None]
  - HYPOGLYCAEMIA [None]
